FAERS Safety Report 6596711-2 (Version None)
Quarter: 2010Q1

REPORT INFORMATION
  Report Type: 
  Country: None (occurrence: None)
  Receive Date: 20100223
  Receipt Date: 20100210
  Transmission Date: 20100710
  Serious: Yes (Hospitalization)
  Sender: FDA-Public Use
  Company Number: IE-BRISTOL-MYERS SQUIBB COMPANY-14972400

PATIENT
  Sex: Male

DRUGS (3)
  1. ONGLYZA [Suspect]
     Dates: start: 20100204, end: 20100206
  2. METFORMIN HCL [Suspect]
  3. DIAMICRON [Suspect]

REACTIONS (5)
  - CONFUSIONAL STATE [None]
  - DIARRHOEA [None]
  - PYREXIA [None]
  - VIRAL TEST POSITIVE [None]
  - VOMITING [None]
